FAERS Safety Report 5478960-X (Version None)
Quarter: 2007Q4

REPORT INFORMATION
  Report Type: 
  Country: None (occurrence: None)
  Receive Date: 20071006
  Receipt Date: 20070925
  Transmission Date: 20080405
  Serious: Yes (Hospitalization, Other)
  Sender: FDA-Public Use
  Company Number: GB-PFIZER INC-2007070442

PATIENT
  Sex: Female

DRUGS (2)
  1. CYTOTEC [Suspect]
     Indication: ABORTION INDUCED
     Route: 067
     Dates: start: 20070802, end: 20070805
  2. MIFEPRISTONE [Concomitant]
     Route: 048
     Dates: start: 20070731, end: 20070731

REACTIONS (5)
  - DRUG INEFFECTIVE FOR UNAPPROVED INDICATION [None]
  - OFF LABEL USE [None]
  - PHARMACEUTICAL PRODUCT COMPLAINT [None]
  - VAGINAL WALL CONGESTION [None]
  - VULVOVAGINAL DRYNESS [None]
